FAERS Safety Report 5644541-8 (Version None)
Quarter: 2008Q1

REPORT INFORMATION
  Report Type: 
  Country: None (occurrence: None)
  Receive Date: 20080229
  Receipt Date: 20070222
  Transmission Date: 20080703
  Serious: No
  Sender: FDA-Public Use
  Company Number: A0640612A

PATIENT
  Age: 82 Year
  Sex: Female

DRUGS (2)
  1. VALTREX [Suspect]
     Indication: GENITAL HERPES
     Dosage: 500MG AS REQUIRED
     Route: 048
  2. UNSPECIFIED INHALER [Concomitant]
     Indication: ASTHMA

REACTIONS (1)
  - HERPES SIMPLEX [None]
